FAERS Safety Report 5489623-9 (Version None)
Quarter: 2007Q4

REPORT INFORMATION
  Report Type: 
  Country: None (occurrence: None)
  Receive Date: 20071009
  Receipt Date: 20070627
  Transmission Date: 20080405
  Serious: Yes (Other)
  Sender: FDA-Public Use
  Company Number: US-JNJFOC-20070606767

PATIENT
  Age: 69 Year
  Sex: Male

DRUGS (15)
  1. ULTRAM ER [Suspect]
     Indication: PAIN
     Dosage: 100 MG, 2 IN 1 DAY, ORAL
     Route: 048
     Dates: start: 20070501, end: 20070501
  2. FLOMAX (TAMSULOSIN HYDROCHLORIDE) UNSPECIFIED [Concomitant]
  3. ALLOPURINOL (ALLOPURINOL) UNSPECIFIED [Concomitant]
  4. ATENOLOL (ATENOLOL) UNSPECIFIED [Concomitant]
  5. NEXIUM (ESOMEPRAZOLE) UNSPECIFIED) [Concomitant]
  6. LISINOPRIL (LISINOPRIL) UNSPECIFIED [Concomitant]
  7. GLUCOPHAGE (METFORMIN HYDROCHLORIDE) UNSPECIFIED [Concomitant]
  8. CLARINEX (DESLORATADINE) UNSPECIFIED [Concomitant]
  9. NITROGLYCERINE (GLYCERTYL TRINITRATE) UNSPECIFIED [Concomitant]
  10. PROSCAR (FINASTERIDE) UNSPECIFIED [Concomitant]
  11. COUMADIN [Concomitant]
  12. UROCIT K (POTASSIUM CITRATE) UNSPECIFIED [Concomitant]
  13. VYTORIN [Concomitant]
  14. HCTZ (HYDROCHLOROTHIAZIDE) UNSPECIFIED [Concomitant]
  15. ALPRAZOLAM (ALPRAZOLAM) UNSPECIFIED [Concomitant]

REACTIONS (1)
  - DYSURIA [None]
